FAERS Safety Report 8965439 (Version 2)
Quarter: 2013Q3

REPORT INFORMATION
  Report Type: Spontaneous
  Country: BR (occurrence: BR)
  Receive Date: 20121213
  Receipt Date: 20130717
  Transmission Date: 20140515
  Serious: Yes (Hospitalization)
  Sender: FDA-Public Use
  Company Number: BR-BRISTOL-MYERS SQUIBB COMPANY-17062795

PATIENT
  Age: 52 Year
  Sex: Female

DRUGS (1)
  1. ONGLYZA TABS 2.5 MG [Suspect]
     Dosage: RESTARTED IN NOV12,INTERRUPTED

REACTIONS (6)
  - Pain in extremity [Unknown]
  - Asthenia [Unknown]
  - Drug ineffective [Unknown]
  - Somnolence [Unknown]
  - Weight decreased [Unknown]
  - Blood glucose decreased [Recovered/Resolved]
